FAERS Safety Report 20757400 (Version 1)
Quarter: 2022Q2

REPORT INFORMATION
  Report Type: Spontaneous
  Country: HN (occurrence: HN)
  Receive Date: 20220427
  Receipt Date: 20220427
  Transmission Date: 20220721
  Serious: Yes (Other)
  Sender: FDA-Public Use
  Company Number: HN-PFIZER INC-202200610326

PATIENT
  Age: 74 Year
  Sex: Female

DRUGS (1)
  1. CADUET [Suspect]
     Active Substance: AMLODIPINE BESYLATE\ATORVASTATIN CALCIUM
     Dosage: 1 DF, DAILY
     Route: 048
     Dates: start: 202201

REACTIONS (2)
  - Foot fracture [Unknown]
  - Bedridden [Unknown]
